FAERS Safety Report 14271518 (Version 4)
Quarter: 2018Q3

REPORT INFORMATION
  Report Type: Spontaneous
  Country: US (occurrence: US)
  Receive Date: 20171211
  Receipt Date: 20180920
  Transmission Date: 20181010
  Serious: Yes (Other)
  Sender: FDA-Public Use
  Company Number: US-BAYER-2017-234701

PATIENT
  Age: 50 Year
  Sex: Female
  Weight: 80.27 kg

DRUGS (1)
  1. MIRENA [Suspect]
     Active Substance: LEVONORGESTREL
     Indication: CONTRACEPTION
     Dosage: 20 MCG/24HR, CONT
     Route: 015
     Dates: start: 20100220, end: 20171201

REACTIONS (5)
  - Embedded device [Recovered/Resolved with Sequelae]
  - Device breakage [Recovered/Resolved with Sequelae]
  - Device issue [Recovered/Resolved with Sequelae]
  - Menopausal symptoms [None]
  - Device use issue [Recovered/Resolved with Sequelae]

NARRATIVE: CASE EVENT DATE: 20171201
